FAERS Safety Report 14723379 (Version 2)
Quarter: 2018Q2

REPORT INFORMATION
  Report Type: Spontaneous
  Country: US (occurrence: US)
  Receive Date: 20180405
  Receipt Date: 20180413
  Transmission Date: 20180711
  Serious: Yes (Other)
  Sender: FDA-Public Use
  Company Number: US-SA-2018SA096347

PATIENT
  Age: 61 Year
  Sex: Male
  Weight: 69.39 kg

DRUGS (5)
  1. ASPIRIN. [Concomitant]
     Active Substance: ASPIRIN
     Indication: PROPHYLAXIS
     Route: 065
     Dates: start: 201403
  2. PRALUENT [Suspect]
     Active Substance: ALIROCUMAB
     Indication: TYPE IIA HYPERLIPIDAEMIA
     Route: 058
  3. COQ10 [Concomitant]
     Active Substance: UBIDECARENONE
     Indication: PROPHYLAXIS
     Route: 065
     Dates: start: 201404
  4. ALIROCUMAB PREFILLED PEN [Suspect]
     Active Substance: ALIROCUMAB
     Indication: TYPE IIA HYPERLIPIDAEMIA
  5. CITRACAL [Concomitant]
     Active Substance: CALCIUM CITRATE
     Indication: NEPHROLITHIASIS
     Route: 065
     Dates: start: 2010

REACTIONS (2)
  - Injection site bruising [Not Recovered/Not Resolved]
  - Spinal operation [Recovering/Resolving]
